FAERS Safety Report 7911801-7 (Version None)
Quarter: 2011Q4

REPORT INFORMATION
  Report Type: 
  Country: None (occurrence: None)
  Receive Date: 20111114
  Receipt Date: 20111114
  Transmission Date: 20120403
  Serious: Yes (Life-Threatening, Other)
  Sender: FDA-Public Use
  Company Number: None

PATIENT
  Age: 36 Year
  Sex: Male
  Weight: 72.574 kg

DRUGS (1)
  1. ZOLPIDEM [Suspect]
     Indication: SLEEP DISORDER
     Dosage: 1
     Route: 048
     Dates: start: 20110801, end: 20111016

REACTIONS (4)
  - IMPRISONMENT [None]
  - INSOMNIA [None]
  - SOMNAMBULISM [None]
  - ALCOHOL USE [None]
